FAERS Safety Report 25953743 (Version 1)
Quarter: 2025Q4

REPORT INFORMATION
  Report Type: Report from Study
  Country: US (occurrence: US)
  Receive Date: 20251023
  Receipt Date: 20251023
  Transmission Date: 20260118
  Serious: No
  Sender: JOHNSON AND JOHNSON
  Company Number: US-JNJFOC-20251020963

PATIENT
  Age: 5 Decade

DRUGS (2)
  1. TREMFYA [Suspect]
     Active Substance: GUSELKUMAB
     Indication: Psoriasis
     Dosage: FREQUENCY: 0 WEEKS; 2ND DOSE AT 4 WEEKS; OR EVERY 8 WEEKS
     Route: 058
     Dates: start: 20250423
  2. TREMFYA [Suspect]
     Active Substance: GUSELKUMAB
     Indication: Psoriatic arthropathy

REACTIONS (3)
  - Hypertension [Unknown]
  - Hypersensitivity [Unknown]
  - Hepatic function abnormal [Unknown]
